FAERS Safety Report 25499207 (Version 5)
Quarter: 2025Q4

REPORT INFORMATION
  Report Type: Report from Study
  Country: US (occurrence: None)
  Receive Date: 20250701
  Receipt Date: 20251029
  Transmission Date: 20260118
  Serious: Yes (Other)
  Sender: UCB
  Company Number: US-UCBSA-2025039150

PATIENT
  Age: 21 Year
  Weight: 113 kg

DRUGS (4)
  1. MIDAZOLAM [Suspect]
     Active Substance: MIDAZOLAM
     Indication: Epilepsy
     Dosage: 5 MILLIGRAM 1 SPRAY ONE NOSTRIL ONCE; MAY ADMINISTER 1 SPRAY IN THE OPPOSITE NOSTRIL AFTER 10 MINS
  2. MIDAZOLAM [Suspect]
     Active Substance: MIDAZOLAM
     Indication: Seizure
  3. LEVETIRACETAM [Concomitant]
     Active Substance: LEVETIRACETAM
     Indication: Epilepsy
     Dosage: 750 MILLIGRAM, 2X/DAY (BID)
  4. TIAGABINE [Concomitant]
     Active Substance: TIAGABINE
     Indication: Epilepsy
     Dosage: 4 MILLIGRAM, 2X/DAY (BID)

REACTIONS (2)
  - Seizure [Recovered/Resolved]
  - Application site burn [Recovered/Resolved]
